FAERS Safety Report 23198784 (Version 1)
Quarter: 2023Q4

REPORT INFORMATION
  Report Type: Spontaneous
  Country: US (occurrence: US)
  Receive Date: 20231117
  Receipt Date: 20231117
  Transmission Date: 20240110
  Serious: Yes (Hospitalization)
  Sender: FDA-Public Use
  Company Number: US-PFIZER INC-202300355329

PATIENT
  Age: 95 Year
  Sex: Male
  Weight: 72.562 kg

DRUGS (1)
  1. VYNDAMAX [Suspect]
     Active Substance: TAFAMIDIS
     Indication: Cardiac amyloidosis
     Dosage: 20 MG, DAILY
     Dates: start: 202301

REACTIONS (4)
  - Pelvic fracture [Unknown]
  - Fall [Unknown]
  - Therapeutic response unexpected [Unknown]
  - Energy increased [Unknown]
